FAERS Safety Report 7442862-X (Version None)
Quarter: 2011Q2

REPORT INFORMATION
  Report Type: 
  Country: None (occurrence: None)
  Receive Date: 20110419
  Receipt Date: 20110405
  Transmission Date: 20111010
  Serious: Yes (Hospitalization)
  Sender: FDA-Public Use
  Company Number: FK201100704

PATIENT
  Age: 65 Year
  Sex: Female

DRUGS (2)
  1. CYTOXAN [Suspect]
     Indication: BREAST CANCER
     Dosage: 600 MG/M2
  2. DOXORUBICIN HCL [Suspect]
     Indication: BREAST CANCER
     Dosage: 60 MG/M2

REACTIONS (4)
  - PAIN IN EXTREMITY [None]
  - ARTERIAL THROMBOSIS [None]
  - OEDEMA PERIPHERAL [None]
  - HYPOAESTHESIA [None]
